FAERS Safety Report 25001775 (Version 1)
Quarter: 2025Q1

REPORT INFORMATION
  Report Type: Spontaneous
  Country: ES (occurrence: ES)
  Receive Date: 20250224
  Receipt Date: 20250224
  Transmission Date: 20250409
  Serious: Yes (Hospitalization)
  Sender: NOVO NORDISK
  Company Number: ES-NOVOPROD-1369924

PATIENT
  Age: 57 Year
  Sex: Female

DRUGS (3)
  1. COAGULATION FACTOR IX (RECOMBINANT), GLYCOPEGYLATED [Suspect]
     Active Substance: COAGULATION FACTOR IX (RECOMBINANT), GLYCOPEGYLATED
     Indication: Haemophilia B with anti factor IX
     Route: 042
  2. COAGULATION FACTOR IX (RECOMBINANT), GLYCOPEGYLATED [Suspect]
     Active Substance: COAGULATION FACTOR IX (RECOMBINANT), GLYCOPEGYLATED
     Route: 042
  3. COAGULATION FACTOR IX (RECOMBINANT), GLYCOPEGYLATED [Suspect]
     Active Substance: COAGULATION FACTOR IX (RECOMBINANT), GLYCOPEGYLATED
     Route: 042

REACTIONS (2)
  - Genital haemorrhage [Recovered/Resolved]
  - Haematoma muscle [Recovered/Resolved]

NARRATIVE: CASE EVENT DATE: 20220901
